FAERS Safety Report 8577186-0 (Version None)
Quarter: 2012Q3

REPORT INFORMATION
  Report Type: 
  Country: None (occurrence: None)
  Receive Date: 20120807
  Receipt Date: 20120727
  Transmission Date: 20120928
  Serious: Yes (Death, Hospitalization)
  Sender: FDA-Public Use
  Company Number: HU-BAXTER-2012BAX013091

PATIENT
  Sex: Male

DRUGS (1)
  1. DIANEAL PD4 GLUCOSE 1,36% PERITONEALIS DIALIZALO OLDAT [Suspect]
     Indication: PERITONEAL DIALYSIS
     Route: 033
     Dates: start: 20120622

REACTIONS (2)
  - ARRHYTHMIA [None]
  - PERITONITIS BACTERIAL [None]
